FAERS Safety Report 5662378-0 (Version None)
Quarter: 2008Q1

REPORT INFORMATION
  Report Type: 
  Country: None (occurrence: None)
  Receive Date: 20080310
  Receipt Date: 20080225
  Transmission Date: 20080703
  Serious: Yes (Hospitalization, Disabling)
  Sender: FDA-Public Use
  Company Number: 2008-01545

PATIENT
  Age: 47 Year
  Sex: Female
  Weight: 61.2 kg

DRUGS (6)
  1. FENTANYL-50 [Suspect]
     Indication: NECK INJURY
     Dosage: 1 PATCH, SINGLE, TRANSDERMAL, 1 PATCH, SINGLE, TRANSDERMAL
     Route: 062
     Dates: start: 20080123, end: 20080123
  2. FENTANYL-50 [Suspect]
     Indication: NECK PAIN
     Dosage: 1 PATCH, SINGLE, TRANSDERMAL, 1 PATCH, SINGLE, TRANSDERMAL
     Route: 062
     Dates: start: 20080123, end: 20080123
  3. FENTANYL-50 [Suspect]
     Indication: NECK INJURY
     Dosage: 1 PATCH, SINGLE, TRANSDERMAL, 1 PATCH, SINGLE, TRANSDERMAL
     Route: 062
     Dates: start: 20080123, end: 20080123
  4. FENTANYL-50 [Suspect]
     Indication: NECK PAIN
     Dosage: 1 PATCH, SINGLE, TRANSDERMAL, 1 PATCH, SINGLE, TRANSDERMAL
     Route: 062
     Dates: start: 20080123, end: 20080123
  5. PAXIL [Concomitant]
  6. FENTANYL-50 [Suspect]

REACTIONS (15)
  - BLINDNESS CORTICAL [None]
  - BLOOD PRESSURE IMMEASURABLE [None]
  - COMA [None]
  - CYANOSIS [None]
  - DIPLOPIA [None]
  - DRUG DETOXIFICATION [None]
  - EMBOLIC STROKE [None]
  - HALLUCINATION, VISUAL [None]
  - HYPOTENSION [None]
  - HYPOXIA [None]
  - INTRACRANIAL ANEURYSM [None]
  - MYOCARDIAL INFARCTION [None]
  - OEDEMA PERIPHERAL [None]
  - PULSE ABSENT [None]
  - SWELLING FACE [None]
